FAERS Safety Report 7966700-1 (Version None)
Quarter: 2011Q4

REPORT INFORMATION
  Report Type: 
  Country: None (occurrence: None)
  Receive Date: 20111209
  Receipt Date: 20111205
  Transmission Date: 20120403
  Serious: No
  Sender: FDA-Public Use
  Company Number: US-BIOGENIDEC-2011BI046015

PATIENT
  Age: 19 Year
  Sex: Male

DRUGS (1)
  1. TYSABRI [Suspect]
     Indication: MULTIPLE SCLEROSIS
     Route: 042
     Dates: start: 20111121

REACTIONS (6)
  - DRY MOUTH [None]
  - DYSURIA [None]
  - MUSCLE STRAIN [None]
  - DIZZINESS [None]
  - RASH PRURITIC [None]
  - GAIT DISTURBANCE [None]
